FAERS Safety Report 23522421 (Version 1)
Quarter: 2024Q1

REPORT INFORMATION
  Report Type: Spontaneous
  Country: GB (occurrence: GB)
  Receive Date: 20240214
  Receipt Date: 20240214
  Transmission Date: 20240410
  Serious: Yes (Other)
  Sender: FDA-Public Use
  Company Number: GB-AUROBINDO-AUR-APL-2024-005326

PATIENT
  Sex: Male

DRUGS (2)
  1. OLANZAPINE [Suspect]
     Active Substance: OLANZAPINE
     Indication: Product used for unknown indication
     Dosage: 15 MILLIGRAM, QD (15 MILLIGRAM, DAILY)
     Route: 048
  2. OLANZAPINE [Suspect]
     Active Substance: OLANZAPINE
     Dosage: 20 MILLIGRAM, QD (20 MILLIGRAM, DAILY)
     Route: 048
     Dates: start: 202306

REACTIONS (2)
  - Alanine aminotransferase increased [Unknown]
  - Therapy change [Unknown]

NARRATIVE: CASE EVENT DATE: 20230101
